FAERS Safety Report 10055995 (Version 1)
Quarter: 2014Q2

REPORT INFORMATION
  Report Type: Spontaneous
  Country: US (occurrence: None)
  Receive Date: 20140402
  Receipt Date: 20140402
  Transmission Date: 20141212
  Serious: No
  Sender: FDA-Public Use
  Company Number: None

PATIENT
  Age: 67 Year
  Sex: Male
  Weight: 97.7 kg

DRUGS (1)
  1. BENAZEPRIL [Suspect]
     Indication: HYPERTENSION
     Route: 048
     Dates: start: 20100304, end: 20140328

REACTIONS (1)
  - Angioedema [None]
